FAERS Safety Report 6291538-3 (Version None)
Quarter: 2009Q3

REPORT INFORMATION
  Report Type: 
  Country: None (occurrence: None)
  Receive Date: 20090730
  Receipt Date: 20090720
  Transmission Date: 20100115
  Serious: Yes (Death)
  Sender: FDA-Public Use
  Company Number: US-ELI_LILLY_AND_COMPANY-US200907004217

PATIENT
  Sex: Female

DRUGS (3)
  1. CYMBALTA [Suspect]
     Indication: NEURALGIA
     Dosage: 30 MG, DAILY (1/D)
     Dates: start: 20070807
  2. DIOVAN [Concomitant]
     Indication: BLOOD PRESSURE
     Dosage: 80 MG, UNK
     Dates: start: 20080430
  3. SYNTHROID [Concomitant]
     Indication: HYPOTHYROIDISM
     Dosage: 100 UG, DAILY (1/D)
     Dates: start: 20041001

REACTIONS (3)
  - CARDIAC DEATH [None]
  - DEATH [None]
  - OFF LABEL USE [None]
